FAERS Safety Report 21422894 (Version 1)
Quarter: 2022Q4

REPORT INFORMATION
  Report Type: Report from Study
  Country: FR (occurrence: FR)
  Receive Date: 20221007
  Receipt Date: 20221007
  Transmission Date: 20230113
  Serious: Yes (Hospitalization)
  Sender: FDA-Public Use
  Company Number: FR-SERVIER-S22010188

PATIENT

DRUGS (10)
  1. PEGASPARGASE [Suspect]
     Active Substance: PEGASPARGASE
     Indication: Acute lymphocytic leukaemia
     Dosage: 2775 [IU], ON D4, D43
     Route: 042
     Dates: start: 20220816
  2. CYTARABINE [Suspect]
     Active Substance: CYTARABINE
     Indication: Acute lymphocytic leukaemia
     Dosage: 30 MG, ON D4, D31
     Route: 037
     Dates: start: 20220816, end: 20220912
  3. CYTARABINE [Suspect]
     Active Substance: CYTARABINE
     Dosage: 83 MG, D31-D34, D38-D41
     Route: 042
     Dates: start: 20220912
  4. HYDROCORTISONE [Suspect]
     Active Substance: HYDROCORTISONE
     Indication: Acute lymphocytic leukaemia
     Dosage: 15 MG, ON D4, D31
     Route: 037
     Dates: start: 20220816, end: 20220912
  5. METHOTREXATE [Suspect]
     Active Substance: METHOTREXATE
     Indication: Acute lymphocytic leukaemia
     Dosage: 15 MG, ON D4, D31
     Route: 037
     Dates: start: 20220816, end: 20220912
  6. ADRIAMYCIN [Suspect]
     Active Substance: DOXORUBICIN HYDROCHLORIDE
     Indication: Acute lymphocytic leukaemia
     Dosage: 28 MG, ON D1, D8, D15
     Route: 042
     Dates: start: 20220812, end: 20220826
  7. VINCRISTINE [Suspect]
     Active Substance: VINCRISTINE
     Indication: Acute lymphocytic leukaemia
     Dosage: 1.7 MG, ON D1, D8, D15
     Route: 042
     Dates: start: 20220812, end: 20220826
  8. CYCLOPHOSPHAMIDE [Suspect]
     Active Substance: CYCLOPHOSPHAMIDE
     Indication: Acute lymphocytic leukaemia
     Dosage: 1120 MG, ON D29
     Route: 042
     Dates: start: 20220909, end: 20220909
  9. DEXAMETHASONE [Suspect]
     Active Substance: DEXAMETHASONE
     Indication: Acute lymphocytic leukaemia
     Dosage: 33 MG, D1-D7, D15-D21
     Route: 048
     Dates: start: 20220812, end: 20220901
  10. THIOGUANINE [Suspect]
     Active Substance: THIOGUANINE
     Indication: Acute lymphocytic leukaemia
     Dosage: 60 MG, D29-D42
     Route: 048
     Dates: start: 20220909, end: 20220922

REACTIONS (1)
  - Hemiparesis [Recovered/Resolved]

NARRATIVE: CASE EVENT DATE: 20220922
